FAERS Safety Report 6326943-X (Version None)
Quarter: 2009Q3

REPORT INFORMATION
  Report Type: 
  Country: None (occurrence: None)
  Receive Date: 20090825
  Receipt Date: 20090819
  Transmission Date: 20100115
  Serious: Yes (Death, Hospitalization, Other)
  Sender: FDA-Public Use
  Company Number: JP-ROXANE LABORATORIES, INC.-2009-RO-00845RO

PATIENT
  Age: 60 Year
  Sex: Male

DRUGS (4)
  1. LITHIUM CARBONATE [Suspect]
     Indication: BIPOLAR DISORDER
     Dosage: 400 MG
     Dates: start: 20070801
  2. LITHIUM CARBONATE [Suspect]
     Dosage: 800 MG
     Dates: start: 20071101
  3. ZOTEPINE [Suspect]
     Indication: BIPOLAR DISORDER
     Dosage: 125 MG
     Dates: start: 20070801
  4. DOXIFLURIDINE [Concomitant]
     Indication: COLORECTAL CANCER
     Dosage: 800 MG

REACTIONS (10)
  - ALANINE AMINOTRANSFERASE INCREASED [None]
  - ANAEMIA [None]
  - ASPARTATE AMINOTRANSFERASE INCREASED [None]
  - CACHEXIA [None]
  - COLORECTAL CANCER [None]
  - DEATH [None]
  - LEUKOCYTOSIS [None]
  - MANIA [None]
  - METASTASES TO LIVER [None]
  - NEUROLEPTIC MALIGNANT SYNDROME [None]
